FAERS Safety Report 14011741 (Version 5)
Quarter: 2018Q4

REPORT INFORMATION
  Report Type: Spontaneous
  Country: US (occurrence: US)
  Receive Date: 20170926
  Receipt Date: 20181107
  Transmission Date: 20190204
  Serious: Yes (Other)
  Sender: FDA-Public Use
  Company Number: US-AMGEN-USASP2017143919

PATIENT
  Sex: Female

DRUGS (9)
  1. XELJANZ XR [Concomitant]
     Active Substance: TOFACITINIB CITRATE
     Dosage: 11 MG, QD
     Route: 048
  2. MTX [Suspect]
     Active Substance: METHOTREXATE SODIUM
     Dosage: UNK, 0.7 ML
     Route: 065
     Dates: start: 201702
  3. ENBREL [Suspect]
     Active Substance: ETANERCEPT
     Indication: RHEUMATOID ARTHRITIS
     Dosage: UNK
     Route: 065
     Dates: start: 201609, end: 201706
  4. MTX [Suspect]
     Active Substance: METHOTREXATE SODIUM
     Dosage: UNK, 0.ML WEEKLY
     Route: 065
  5. ORENCIA [Concomitant]
     Active Substance: ABATACEPT
     Indication: RHEUMATOID ARTHRITIS
     Dosage: UNK
     Route: 065
     Dates: start: 201602, end: 201609
  6. HUMIRA [Suspect]
     Active Substance: ADALIMUMAB
     Indication: RHEUMATOID ARTHRITIS
     Dosage: UNK
     Route: 065
     Dates: start: 201801
  7. MTX [Suspect]
     Active Substance: METHOTREXATE SODIUM
     Dosage: UNK, 0.6 CC WEEKLY
     Route: 065
  8. MTX [Suspect]
     Active Substance: METHOTREXATE SODIUM
     Indication: PRODUCT USED FOR UNKNOWN INDICATION
     Dosage: UNK
     Route: 065
  9. MTX [Suspect]
     Active Substance: METHOTREXATE SODIUM
     Dosage: UNK, 0.6 ML
     Route: 065
     Dates: start: 201706

REACTIONS (7)
  - Drug ineffective [Unknown]
  - Fatigue [Unknown]
  - Insomnia [Unknown]
  - Hypertension [Unknown]
  - Hand deformity [Unknown]
  - Liver function test increased [Unknown]
  - Rheumatoid arthritis [Not Recovered/Not Resolved]

NARRATIVE: CASE EVENT DATE: 2017
